FAERS Safety Report 12943399 (Version 2)
Quarter: 2017Q1

REPORT INFORMATION
  Report Type: Spontaneous
  Country: US (occurrence: US)
  Receive Date: 20161115
  Receipt Date: 20170201
  Transmission Date: 20170428
  Serious: Yes (Hospitalization)
  Sender: FDA-Public Use
  Company Number: US-PFIZER INC-2016530931

PATIENT
  Age: 59 Year
  Sex: Male
  Weight: 101 kg

DRUGS (46)
  1. ACETAMINOPHEN. [Concomitant]
     Active Substance: ACETAMINOPHEN
     Dosage: 650 MG, AS NEEDED (Q 6 HRS OR Q 4HRS)
     Route: 048
     Dates: start: 20150723
  2. DOCUSATE SODIUM. [Concomitant]
     Active Substance: DOCUSATE SODIUM
     Indication: CONSTIPATION
     Dosage: 100 MG, AS NEEDED (Q 12 HRS PRN)
     Route: 048
     Dates: start: 20150723
  3. METOLAZONE. [Concomitant]
     Active Substance: METOLAZONE
     Indication: OEDEMA
     Dosage: 5 MG, AS NEEDED
     Route: 048
  4. SIMETHICONE (DIMETHICONE) [Concomitant]
     Active Substance: DIMETHICONE
     Dosage: 80 MG, 3X/DAY (Q 8 HRS)
     Route: 048
     Dates: start: 20150723
  5. BACTRIM DS [Concomitant]
     Active Substance: SULFAMETHOXAZOLE\TRIMETHOPRIM
     Dosage: UNK, 2X/DAY, (SULFAMETHOXAZOLE: 800MG, TRIMETHOPRIM: 160MG) (BID X 7 DAYS)
     Route: 048
  6. TRAZODONE HYDROCHLORIDE. [Concomitant]
     Active Substance: TRAZODONE HYDROCHLORIDE
     Dosage: 25 MG, 2X/DAY
     Route: 048
  7. ZITHROMAX [Concomitant]
     Active Substance: AZITHROMYCIN DIHYDRATE
     Dosage: 250 MG, UNK (AS DIRECTED)
     Route: 048
  8. DUODERM HYDROACTIVE [Concomitant]
     Active Substance: CARBOXYMETHYLCELLULOSE SODIUM\PECTIN
     Dosage: UNK (AS DIRECTED EVERY 8 HOURS)
     Dates: start: 20151122
  9. HYDROCHLOORTHIAZIDE [Concomitant]
     Active Substance: HYDROCHLOROTHIAZIDE
     Dosage: 25 MG, DAILY
     Route: 048
     Dates: start: 20150721
  10. SIMETHICONE (DIMETHICONE) [Concomitant]
     Active Substance: DIMETHICONE
     Dosage: UNK
     Dates: end: 20150721
  11. TRAMADOL HCL [Concomitant]
     Active Substance: TRAMADOL HYDROCHLORIDE
     Indication: PAIN
     Dosage: 100 MG, AS NEEDED (Q 8HRS)
     Route: 048
     Dates: start: 20150723
  12. ZINC OXIDE. [Concomitant]
     Active Substance: ZINC OXIDE
     Dosage: 30 G, UNK (EACH SHIFT)
     Route: 061
     Dates: start: 20150723
  13. OXYCODONE HYDROCHLORIDE. [Concomitant]
     Active Substance: OXYCODONE HYDROCHLORIDE
     Indication: PAIN
  14. LASIX [Concomitant]
     Active Substance: FUROSEMIDE
     Indication: OEDEMA
     Dosage: 40 MG, UNK (1-2 X DAILY)
  15. ZAROXOLYN [Concomitant]
     Active Substance: METOLAZONE
     Indication: OEDEMA
     Dosage: 5 MG, AS NEEDED
  16. LYRICA [Suspect]
     Active Substance: PREGABALIN
     Indication: NEUROPATHY PERIPHERAL
     Dosage: 200 MG, 2X/DAY
     Route: 048
  17. LYRICA [Suspect]
     Active Substance: PREGABALIN
     Dosage: 150 MG, 2X/DAY
     Dates: start: 20151124, end: 20160325
  18. BACLOFEN. [Concomitant]
     Active Substance: BACLOFEN
     Indication: MUSCLE SPASMS
     Dosage: 20 MG, 3X/DAY  (Q 8 HRS)
     Route: 048
     Dates: start: 20150721
  19. VIAGRA [Concomitant]
     Active Substance: SILDENAFIL CITRATE
     Dosage: 100 MG, AS NEEDED (DAILY AS NEEDED)
     Route: 048
  20. VIAGRA [Concomitant]
     Active Substance: SILDENAFIL CITRATE
     Dosage: 50 MG, AS NEEDED
     Route: 048
     Dates: end: 20160818
  21. VIAGRA [Concomitant]
     Active Substance: SILDENAFIL CITRATE
     Dosage: 25 MG, AS NEEDED, (DAILY/1 TAB A DAY)
     Route: 048
     Dates: end: 20170106
  22. MIRALAX [Concomitant]
     Active Substance: POLYETHYLENE GLYCOL 3350
     Indication: ABDOMINAL DISTENSION
  23. LYRICA [Suspect]
     Active Substance: PREGABALIN
     Indication: AMYOTROPHIC LATERAL SCLEROSIS
     Dosage: 200 MG, 2X/DAY
     Route: 048
  24. BACLOFEN. [Concomitant]
     Active Substance: BACLOFEN
     Indication: MUSCLE CONTRACTURE
  25. BISACODYL. [Concomitant]
     Active Substance: BISACODYL
     Indication: CONSTIPATION
     Dosage: 10 MG, AS NEEDED
     Route: 054
     Dates: start: 20150723
  26. CHLORHEXIDINE GLUCONATE. [Concomitant]
     Active Substance: CHLORHEXIDINE GLUCONATE
     Dosage: 1000 MG, WEEKLY (CHLORHEXIDINE GLUCONATE 2% EXTERNAL LIQUID)
     Route: 061
     Dates: start: 20150723
  27. DILAUDID [Concomitant]
     Active Substance: HYDROMORPHONE HYDROCHLORIDE
     Indication: PAIN
     Dosage: 2 MG, AS NEEDED, (Q 4HRS PRN)
     Route: 048
  28. LEVALBUTEROL HCL [Concomitant]
     Active Substance: LEVALBUTEROL HYDROCHLORIDE
     Dosage: UNK, 4X/DAY (Q 6 HRS)
     Route: 055
     Dates: start: 20150723
  29. NYSTATIN. [Concomitant]
     Active Substance: NYSTATIN
     Dosage: UNK, 3X/DAY
     Route: 061
     Dates: start: 20150723
  30. SODIUM PHOSPHATES [Concomitant]
     Active Substance: SODIUM PHOSPHATE, DIBASIC, ANHYDROUS\SODIUM PHOSPHATE, DIBASIC, HEPTAHYDRATE\SODIUM PHOSPHATE, MONOBASIC, MONOHYDRATE
     Indication: CONSTIPATION
     Dosage: UNK, AS NEEDED  (Q DAY)
     Route: 054
     Dates: start: 20150723
  31. AMBIEN [Concomitant]
     Active Substance: ZOLPIDEM TARTRATE
     Dosage: 5 MG, 1X/DAY (AT BED TIME)
     Route: 048
  32. MIRALAX [Concomitant]
     Active Substance: POLYETHYLENE GLYCOL 3350
     Indication: CONSTIPATION
     Dosage: UNK UNK, DAILY
  33. IPRATROPIUM BROMIDE. [Concomitant]
     Active Substance: IPRATROPIUM BROMIDE
     Dosage: 2.5 ML, UNK, (Q 6 HRS)
     Route: 055
     Dates: start: 20150723
  34. LACTULOSE. [Concomitant]
     Active Substance: LACTULOSE
     Indication: CONSTIPATION
     Dosage: 30 ML, AS NEEDED, (6 HRS PRN) (DISPENSE #450 ML)
     Route: 048
     Dates: start: 20150721
  35. LORTADINE [Concomitant]
     Dosage: 10 MG, DAILY
     Route: 048
     Dates: start: 20150723
  36. NORCO [Concomitant]
     Active Substance: ACETAMINOPHEN\HYDROCODONE BITARTRATE
     Dosage: 1 DF, AS NEEDED [HYDROCODONE BITARTRATE: 10MG]/[PARACETAMOL: 325MG] 6X DAY PRN
     Route: 048
     Dates: start: 20150721, end: 20160913
  37. OXYCODONE HYDROCHLORIDE. [Concomitant]
     Active Substance: OXYCODONE HYDROCHLORIDE
     Indication: PAIN
     Dosage: 5 MG, 4X/DAY, (Q 6 HRS) (PRN)
     Route: 048
     Dates: end: 20160517
  38. TRAMADOL HCL [Concomitant]
     Active Substance: TRAMADOL HYDROCHLORIDE
     Dosage: 50 MG, AS NEEDED, (Q 8HRS)
     Route: 048
     Dates: start: 20150721, end: 20150723
  39. LYRICA [Suspect]
     Active Substance: PREGABALIN
     Dosage: 100 MG, 2X/DAY
     Route: 048
     Dates: start: 20150721, end: 20151124
  40. CLOTRIMAZOLE AND BETAMETHASONE [Concomitant]
     Active Substance: BETAMETHASONE\CLOTRIMAZOLE
     Dosage: UNK, 2X/DAY, UNK, (CLOTRIMAZOLE: 1%, BETAMETHASONE: 0.05%)
     Route: 061
     Dates: start: 20150723
  41. CODEINE AND GUAIFENESIN [Concomitant]
     Active Substance: CODEINE\GUAIFENESIN
     Indication: COUGH
     Dosage: 10 ML, UNK (10/100/5ML) (6 HRS PRN )
     Route: 048
  42. FUROSEMIDE. [Concomitant]
     Active Substance: FUROSEMIDE
     Dosage: 40 MG, 1X/DAY, (Q DAY)
     Route: 048
  43. DILAUDID [Concomitant]
     Active Substance: HYDROMORPHONE HYDROCHLORIDE
     Indication: PAIN
  44. HYDROMORPHONE HCL [Concomitant]
     Active Substance: HYDROMORPHONE HYDROCHLORIDE
     Dosage: 1 MG, AS NEEDED, (PUSH Q 4 HRS PRN)
     Route: 042
     Dates: start: 20150723
  45. PROTONIX [Concomitant]
     Active Substance: PANTOPRAZOLE SODIUM
     Dosage: 40 MG, DAILY
     Route: 048
     Dates: start: 20150721
  46. CYMBALTA [Concomitant]
     Active Substance: DULOXETINE HYDROCHLORIDE
     Dosage: 30 MG, DAILY
     Route: 048
     Dates: end: 20160719

REACTIONS (5)
  - Unresponsive to stimuli [Unknown]
  - Loss of consciousness [Unknown]
  - Carbon dioxide increased [Unknown]
  - Product use issue [Unknown]
  - Pulmonary function test decreased [Unknown]

NARRATIVE: CASE EVENT DATE: 20150721
